FAERS Safety Report 20325697 (Version 3)
Quarter: 2022Q1

REPORT INFORMATION
  Report Type: Report from Study
  Country: US (occurrence: US)
  Receive Date: 20220112
  Receipt Date: 20220331
  Transmission Date: 20220423
  Serious: No
  Sender: FDA-Public Use
  Company Number: US-NOVARTISTESTPH-NVSC2022US005175

PATIENT
  Age: 49 Year
  Sex: Female

DRUGS (1)
  1. ENTRESTO [Suspect]
     Active Substance: SACUBITRIL\VALSARTAN
     Indication: Product used for unknown indication
     Dosage: 1 DOSAGE FORM, BID (49/51 MG)
     Route: 048
     Dates: start: 202111

REACTIONS (9)
  - Illness [Not Recovered/Not Resolved]
  - Sneezing [Unknown]
  - Sinusitis [Not Recovered/Not Resolved]
  - Nasopharyngitis [Unknown]
  - Swelling [Unknown]
  - Weight increased [Unknown]
  - Viral infection [Not Recovered/Not Resolved]
  - Exposure to SARS-CoV-2 [Unknown]
  - Cough [Unknown]

NARRATIVE: CASE EVENT DATE: 20220107
